FAERS Safety Report 5268255-1 (Version None)
Quarter: 2007Q1

REPORT INFORMATION
  Report Type: 
  Country: None (occurrence: None)
  Receive Date: 20070319
  Receipt Date: 20070314
  Transmission Date: 20070707
  Serious: Yes (Hospitalization, Other)
  Sender: FDA-Public Use
  Company Number: US-BRISTOL-MYERS SQUIBB COMPANY-13707567

PATIENT
  Age: 39 Year
  Sex: Male
  Weight: 73 kg

DRUGS (9)
  1. ERBITUX [Suspect]
     Indication: TONSIL CANCER
     Route: 042
     Dates: start: 20070213, end: 20070213
  2. CISPLATIN [Suspect]
     Indication: TONSIL CANCER
     Route: 042
     Dates: start: 20070213, end: 20070213
  3. TAXOTERE [Suspect]
  4. RADIATION THERAPY [Suspect]
  5. FENTANYL [Concomitant]
     Route: 059
     Dates: start: 20070305
  6. OXYCODONE HCL [Concomitant]
     Route: 048
  7. GABAPENTIN [Concomitant]
     Route: 048
  8. DECADRON [Concomitant]
     Route: 048
  9. ZOFRAN [Concomitant]
     Route: 048

REACTIONS (3)
  - DYSPHAGIA [None]
  - MUCOSAL INFLAMMATION [None]
  - WEIGHT DECREASED [None]
